FAERS Safety Report 18673518 (Version 2)
Quarter: 2021Q3

REPORT INFORMATION
  Report Type: Spontaneous
  Country: FR (occurrence: FR)
  Receive Date: 20201229
  Receipt Date: 20210821
  Transmission Date: 20211014
  Serious: Yes (Life-Threatening, Other)
  Sender: FDA-Public Use
  Company Number: FR-AUROBINDO-AUR-APL-2020-063167

PATIENT
  Age: 84 Year
  Sex: Female
  Weight: 70 kg

DRUGS (5)
  1. AMOXICILLIN. [Suspect]
     Active Substance: AMOXICILLIN
     Indication: ENDOCARDITIS
     Dosage: 12 GRAM, ONCE A DAY
     Route: 042
     Dates: start: 20201109, end: 20201112
  2. CEFAZOLIN [Concomitant]
     Active Substance: CEFAZOLIN
     Indication: ENDOCARDITIS
     Dosage: 6 GRAM, ONCE A DAY
     Route: 042
     Dates: start: 20201109
  3. IODINE. [Suspect]
     Active Substance: IODINE
     Indication: COMPUTERISED TOMOGRAM
     Dosage: UNK
     Route: 042
     Dates: start: 20201108, end: 20201108
  4. GENTAMICIN. [Suspect]
     Active Substance: GENTAMICIN
     Indication: ENDOCARDITIS
     Dosage: 3 MILLIGRAM/KILOGRAM, ONCE A DAY
     Route: 042
     Dates: start: 20201110, end: 20201111
  5. RAMIPRIL. [Suspect]
     Active Substance: RAMIPRIL
     Indication: HYPERTENSION
     Dosage: 5 MILLIGRAM, ONCE A DAY
     Route: 048
     Dates: end: 202011

REACTIONS (1)
  - Acute kidney injury [Recovered/Resolved]

NARRATIVE: CASE EVENT DATE: 20201112
